FAERS Safety Report 5053125-4 (Version None)
Quarter: 2006Q3

REPORT INFORMATION
  Report Type: 
  Country: None (occurrence: None)
  Receive Date: 20060711
  Receipt Date: 20060621
  Transmission Date: 20061208
  Serious: Yes (Other)
  Sender: FDA-Public Use
  Company Number: DE200606004724

PATIENT
  Age: 37 Year
  Sex: Male

DRUGS (2)
  1. ZYPREXA [Suspect]
     Indication: DELUSIONAL DISORDER, PERSECUTORY TYPE
     Dosage: SEE IMAGE
     Route: 048
     Dates: start: 20060703
  2. JOHANNISKRAUT-KAPSELN                   (HYPERICUM EXTRACT) [Concomitant]

REACTIONS (5)
  - BLOOD CHOLESTEROL INCREASED [None]
  - HIGH DENSITY LIPOPROTEIN INCREASED [None]
  - LIPASE INCREASED [None]
  - LOW DENSITY LIPOPROTEIN INCREASED [None]
  - METABOLIC SYNDROME [None]
